FAERS Safety Report 5732852-7 (Version None)
Quarter: 2008Q2

REPORT INFORMATION
  Report Type: 
  Country: None (occurrence: None)
  Receive Date: 20080507
  Receipt Date: 20080507
  Transmission Date: 20081010
  Serious: Yes (Other)
  Sender: FDA-Public Use
  Company Number: None

PATIENT
  Age: 75 Year
  Sex: Female
  Weight: 81.6475 kg

DRUGS (1)
  1. SIMVASTATIN [Suspect]
     Indication: CARDIOVASCULAR DISORDER
     Dosage: 1 TABLET DAILY PO
     Route: 048
     Dates: start: 20071212, end: 20080227

REACTIONS (2)
  - AMNESIA [None]
  - PHARMACEUTICAL PRODUCT COMPLAINT [None]
